FAERS Safety Report 5680943-1 (Version None)
Quarter: 2008Q1

REPORT INFORMATION
  Report Type: 
  Country: None (occurrence: None)
  Receive Date: 20080326
  Receipt Date: 20080314
  Transmission Date: 20080703
  Serious: No
  Sender: FDA-Public Use
  Company Number: US-PFIZER INC-2008016512

PATIENT
  Age: 61 Year
  Sex: Male
  Weight: 78.5 kg

DRUGS (3)
  1. VIAGRA [Suspect]
     Indication: ERECTILE DYSFUNCTION
     Route: 048
  2. ANDROGEL [Suspect]
     Indication: ERECTILE DYSFUNCTION
     Dates: start: 20050517, end: 20060901
  3. GLIPIZIDE [Concomitant]
     Dosage: DAILY DOSE:10MG

REACTIONS (1)
  - NO ADVERSE EVENT [None]
